FAERS Safety Report 18408244 (Version 3)
Quarter: 2020Q4

REPORT INFORMATION
  Report Type: Spontaneous
  Country: CA (occurrence: CA)
  Receive Date: 20201021
  Receipt Date: 20201120
  Transmission Date: 20210114
  Serious: Yes (Death)
  Sender: FDA-Public Use
  Company Number: CA-REGENERON PHARMACEUTICALS, INC.-2020-83205

PATIENT

DRUGS (1)
  1. EYLEA [Suspect]
     Active Substance: AFLIBERCEPT
     Indication: MACULAR OEDEMA
     Dosage: UNK; TOTAL DOSE OF EYLEA PRIOR TO THE EVENT IS UNKNOWN. DATE OF LAST DOSE OF EYLEA PRIOR TO THE EVEN
     Route: 031
     Dates: start: 20150324

REACTIONS (1)
  - Death [Fatal]
